FAERS Safety Report 20529681 (Version 4)
Quarter: 2022Q2

REPORT INFORMATION
  Report Type: Report from Study
  Country: FR (occurrence: FR)
  Receive Date: 20220301
  Receipt Date: 20220617
  Transmission Date: 20220721
  Serious: Yes (Other)
  Sender: FDA-Public Use
  Company Number: FR-GILEAD-2022-0567811

PATIENT
  Sex: Female
  Weight: 63 kg

DRUGS (4)
  1. SACITUZUMAB GOVITECAN [Suspect]
     Active Substance: SACITUZUMAB GOVITECAN
     Indication: Breast cancer
     Dosage: 10 MG/KG, UNK ON DAY 1
     Route: 065
     Dates: start: 20211130, end: 20211130
  2. SACITUZUMAB GOVITECAN [Suspect]
     Active Substance: SACITUZUMAB GOVITECAN
     Dosage: 10 MG/KG, UNK ON DAY 8
     Route: 065
     Dates: start: 20211208, end: 20211208
  3. SACITUZUMAB GOVITECAN [Suspect]
     Active Substance: SACITUZUMAB GOVITECAN
     Dosage: 10 MG/KG, C2D1 AND D8
     Route: 065
     Dates: start: 20211222, end: 20211229
  4. SACITUZUMAB GOVITECAN [Suspect]
     Active Substance: SACITUZUMAB GOVITECAN
     Dosage: 10 MG/KG, C3D1 AND D8
     Route: 065
     Dates: start: 20220112, end: 20220119

REACTIONS (2)
  - Disease progression [Unknown]
  - Inappropriate schedule of product administration [Unknown]
